FAERS Safety Report 15778064 (Version 1)
Quarter: 2018Q4

REPORT INFORMATION
  Report Type: Report from Study
  Country: CA (occurrence: CA)
  Receive Date: 20181231
  Receipt Date: 20181231
  Transmission Date: 20190205
  Serious: Yes (Hospitalization, Other)
  Sender: FDA-Public Use
  Company Number: CA-JNJFOC-20181232563

PATIENT
  Age: 85 Year
  Sex: Male
  Weight: 73 kg

DRUGS (3)
  1. XARELTO [Suspect]
     Active Substance: RIVAROXABAN
     Indication: PRODUCT USED FOR UNKNOWN INDICATION
     Route: 048
  2. WARFARIN [Concomitant]
     Active Substance: WARFARIN
     Route: 065
  3. OFEV [Suspect]
     Active Substance: NINTEDANIB
     Indication: IDIOPATHIC PULMONARY FIBROSIS
     Route: 048

REACTIONS (15)
  - Nausea [Not Recovered/Not Resolved]
  - Off label use [Not Recovered/Not Resolved]
  - Thrombosis [Not Recovered/Not Resolved]
  - Asthenia [Not Recovered/Not Resolved]
  - Iron deficiency anaemia [Not Recovered/Not Resolved]
  - Arthralgia [Not Recovered/Not Resolved]
  - Decreased appetite [Not Recovered/Not Resolved]
  - Gait disturbance [Not Recovered/Not Resolved]
  - Sleep disorder [Not Recovered/Not Resolved]
  - Epistaxis [Not Recovered/Not Resolved]
  - Peripheral swelling [Not Recovered/Not Resolved]
  - Diarrhoea [Not Recovered/Not Resolved]
  - Weight decreased [Not Recovered/Not Resolved]
  - Joint effusion [Not Recovered/Not Resolved]
  - Cough [Not Recovered/Not Resolved]
